FAERS Safety Report 9413942 (Version 2)
Quarter: 2013Q3

REPORT INFORMATION
  Report Type: Spontaneous
  Country: US (occurrence: US)
  Receive Date: 20130723
  Receipt Date: 20130819
  Transmission Date: 20140515
  Serious: No
  Sender: FDA-Public Use
  Company Number: US-BIOGENIDEC-2013BI066424

PATIENT
  Age: 51 Year
  Sex: Female

DRUGS (1)
  1. TYSABRI [Suspect]
     Indication: MULTIPLE SCLEROSIS
     Route: 042
     Dates: start: 20110627

REACTIONS (6)
  - Memory impairment [Recovered/Resolved]
  - Balance disorder [Recovered/Resolved]
  - Speech disorder [Recovered/Resolved]
  - Muscle twitching [Recovered/Resolved]
  - Multiple sclerosis [Unknown]
  - General symptom [Not Recovered/Not Resolved]
